FAERS Safety Report 4664161-1 (Version None)
Quarter: 2005Q2

REPORT INFORMATION
  Report Type: 
  Country: None (occurrence: None)
  Receive Date: 20050516
  Receipt Date: 20050516
  Transmission Date: 20051028
  Serious: Yes (Hospitalization)
  Sender: FDA-Public Use
  Company Number: None

PATIENT
  Age: 53 Year
  Sex: Male
  Weight: 113 kg

DRUGS (1)
  1. HYDROMORPHONE    2MG [Suspect]
     Indication: MUSCLE SPASMS
     Dosage: 2-4MG   Q4TH  PRN   ORAL
     Route: 048
     Dates: start: 20040509, end: 20040515

REACTIONS (1)
  - ANAPHYLACTIC REACTION [None]
